FAERS Safety Report 5268126-0 (Version None)
Quarter: 2007Q1

REPORT INFORMATION
  Report Type: 
  Country: None (occurrence: None)
  Receive Date: 20070319
  Receipt Date: 20070313
  Transmission Date: 20070707
  Serious: Yes (Death)
  Sender: FDA-Public Use
  Company Number: US-ELI_LILLY_AND_COMPANY-US200701004775

PATIENT
  Sex: Male

DRUGS (2)
  1. SYMBYAX [Suspect]
     Indication: BIPOLAR I DISORDER
     Dosage: UNK D/F, UNK
     Dates: start: 20050401, end: 20060401
  2. OTHER DIAGNOSTIC AGENTS [Concomitant]

REACTIONS (1)
  - HIV INFECTION [None]
